FAERS Safety Report 10556712 (Version 2)
Quarter: 2014Q4

REPORT INFORMATION
  Report Type: Spontaneous
  Country: US (occurrence: US)
  Receive Date: 20141031
  Receipt Date: 20141031
  Transmission Date: 20150529
  Serious: Yes (Other)
  Sender: FDA-Public Use
  Company Number: US-CIPLA LTD.-2014US01577

PATIENT
  Age: 54 Year
  Sex: Female

DRUGS (5)
  1. CARBOPLATIN. [Suspect]
     Active Substance: CARBOPLATIN
     Indication: MALIGNANT PERITONEAL NEOPLASM
     Dosage: SIX CYCLES OVER FOUR MONTHS
  2. EXTERNAL BEAM RADIOTHERAPY [Suspect]
     Active Substance: RADIATION THERAPY
     Indication: MALIGNANT PERITONEAL NEOPLASM
     Dosage: 50 GY IN 2 GY DAILY FRACTIONS TO THE PRIMARY TUMOR
  3. TAXOL [Suspect]
     Active Substance: PACLITAXEL
     Indication: MALIGNANT PERITONEAL NEOPLASM
     Dosage: SIX CYCLES OVER FOUR MONTHS
  4. EXTERNAL BEAM RADIOTHERAPY [Suspect]
     Active Substance: RADIATION THERAPY
     Dosage: 45 GY IN 1.8 GY FRACTIONS TO THE PELVIS INCLUDING THE PELVIC LYMPH NODES
  5. HDR BRACHYTHERAPY [Suspect]
     Active Substance: RADIATION THERAPY
     Indication: MALIGNANT PERITONEAL NEOPLASM
     Dosage: 15 GY IN 5 GY FRACTIONS OVER TWO DAYS

REACTIONS (3)
  - Metastases to liver [None]
  - Metastasis [Unknown]
  - Metastases to bone [None]
